FAERS Safety Report 8524759-7 (Version None)
Quarter: 2012Q3

REPORT INFORMATION
  Report Type: 
  Country: None (occurrence: None)
  Receive Date: 20120720
  Receipt Date: 20120717
  Transmission Date: 20120928
  Serious: Yes (Death, Hospitalization)
  Sender: FDA-Public Use
  Company Number: BR-ELI_LILLY_AND_COMPANY-BR201207005444

PATIENT
  Sex: Female
  Weight: 38 kg

DRUGS (8)
  1. LASIX [Concomitant]
     Indication: CARDIAC DISORDER
     Dosage: UNK, UNKNOWN
     Route: 065
     Dates: end: 20120201
  2. HUMALOG [Suspect]
     Dosage: UNK, UNKNOWN
     Route: 058
  3. MICARDIS [Concomitant]
     Indication: BLOOD PRESSURE
     Dosage: UNK, UNKNOWN
     Route: 065
     Dates: end: 20120201
  4. DIGOXIN [Concomitant]
     Indication: CARDIOMEGALY
     Dosage: UNK, UNKNOWN
     Route: 065
  5. HUMULIN N [Suspect]
     Indication: DIABETES MELLITUS
     Dosage: UNK, UNKNOWN
     Route: 058
  6. ADALAT [Concomitant]
     Indication: HYPERTENSION
     Dosage: 1 DF, BID
     Route: 065
  7. LOSARTAN POTASSIUM [Concomitant]
     Indication: HYPERTENSION
  8. HUMALOG [Suspect]
     Indication: DIABETES MELLITUS
     Dosage: UNK, UNKNOWN
     Route: 058

REACTIONS (5)
  - PAIN [None]
  - BREAST CANCER [None]
  - HYPOTENSION [None]
  - PULMONARY OEDEMA [None]
  - RESPIRATORY FAILURE [None]
